FAERS Safety Report 16044356 (Version 3)
Quarter: 2019Q1

REPORT INFORMATION
  Report Type: Spontaneous
  Country: HU (occurrence: HU)
  Receive Date: 20190306
  Receipt Date: 20190306
  Transmission Date: 20190418
  Serious: Yes (Other)
  Sender: FDA-Public Use
  Company Number: PHHY2019HU048527

PATIENT
  Age: 3 Year
  Sex: Male

DRUGS (4)
  1. DEXAMETHASONE. [Suspect]
     Active Substance: DEXAMETHASONE
     Indication: HYPERSENSITIVITY
     Dosage: UNK
     Route: 061
  2. TOBRAMYCIN. [Suspect]
     Active Substance: TOBRAMYCIN
     Indication: EYE SYMPTOM
  3. DEXAMETHASONE. [Suspect]
     Active Substance: DEXAMETHASONE
     Indication: EYE SYMPTOM
  4. TOBRAMYCIN. [Suspect]
     Active Substance: TOBRAMYCIN
     Indication: HYPERSENSITIVITY
     Dosage: UNK
     Route: 061

REACTIONS (7)
  - Glaucoma [Unknown]
  - Hypersensitivity [Recovering/Resolving]
  - Eye symptom [Recovering/Resolving]
  - Intraocular pressure increased [Unknown]
  - Visual impairment [Unknown]
  - Cataract cortical [Unknown]
  - Eye disorder [Unknown]
